FAERS Safety Report 8362523 (Version 3)
Quarter: 2012Q4

REPORT INFORMATION
  Report Type: 
  Country: US (occurrence: US)
  Receive Date: 20120130
  Receipt Date: 20120907
  Transmission Date: 20130627
  Serious: Yes (Hospitalization, Other)
  Sender: FDA-Public Use
  Company Number: US-ROCHE-785011

PATIENT
  Age: 18 Year
  Sex: Male
  Weight: 65.83 kg

DRUGS (1)
  1. ACCUTANE [Suspect]
     Indication: ACNE
     Route: 065
     Dates: start: 19991025, end: 200004

REACTIONS (13)
  - Inflammatory bowel disease [Unknown]
  - Crohn^s disease [Unknown]
  - Emotional distress [Unknown]
  - Small intestinal obstruction [Unknown]
  - Depression [Unknown]
  - Suicidal ideation [Unknown]
  - Dyspnoea [Unknown]
  - Chest pain [Unknown]
  - Irritable bowel syndrome [Unknown]
  - Osteopenia [Unknown]
  - Chapped lips [Not Recovered/Not Resolved]
  - Epistaxis [Recovered/Resolved]
  - Headache [Not Recovered/Not Resolved]
